FAERS Safety Report 7301374-4 (Version None)
Quarter: 2011Q1

REPORT INFORMATION
  Report Type: 
  Country: None (occurrence: None)
  Receive Date: 20110218
  Receipt Date: 20110206
  Transmission Date: 20110831
  Serious: Yes (Other)
  Sender: FDA-Public Use
  Company Number: PHHY2011IL09945

PATIENT
  Age: 60 Year
  Sex: Male

DRUGS (4)
  1. RASILEZ [Suspect]
     Indication: PROTEINURIA
     Dosage: 300 MG, DAILY
     Route: 048
  2. RASILEZ [Suspect]
     Indication: HYPERTENSION
     Dosage: 150 MG, DAILY
     Route: 048
     Dates: start: 20110201
  3. VASODIP [Concomitant]
     Indication: HYPERTENSION
  4. INSULIN [Concomitant]
     Indication: DIABETES MELLITUS

REACTIONS (3)
  - TACHYCARDIA [None]
  - RENAL ARTERY STENOSIS [None]
  - BLOOD PRESSURE INCREASED [None]
